FAERS Safety Report 7024092-9 (Version None)
Quarter: 2010Q4

REPORT INFORMATION
  Report Type: 
  Country: None (occurrence: None)
  Receive Date: 20101001
  Receipt Date: 20100927
  Transmission Date: 20110411
  Serious: Yes (Death)
  Sender: FDA-Public Use
  Company Number: CA-ASTRAZENECA-2010SE45258

PATIENT
  Age: 49 Year
  Sex: Female
  Weight: 73.5 kg

DRUGS (8)
  1. SEROQUEL XR [Suspect]
     Indication: BIPOLAR DISORDER
     Route: 048
     Dates: start: 20100414
  2. SEROQUEL XR [Suspect]
     Route: 048
     Dates: start: 20100401
  3. EFFEXOR XR [Concomitant]
     Indication: DEPRESSION
     Route: 048
     Dates: start: 20100413, end: 20100423
  4. EFFEXOR XR [Concomitant]
     Route: 048
     Dates: start: 20100423
  5. DITROPAN [Concomitant]
     Indication: HYPERTONIC BLADDER
     Dosage: 5 MG AT AM AND 2.5 MG AT NOON
     Route: 048
  6. MULTI-VITAMIN [Concomitant]
  7. CALCIUM [Concomitant]
  8. VITAMIN D [Concomitant]

REACTIONS (2)
  - DEATH [None]
  - SEDATION [None]
